FAERS Safety Report 6804741-8 (Version None)
Quarter: 2010Q2

REPORT INFORMATION
  Report Type: 
  Country: None (occurrence: None)
  Receive Date: 20100628
  Receipt Date: 20100628
  Transmission Date: 20101027
  Serious: Yes (Life-Threatening, Hospitalization)
  Sender: FDA-Public Use
  Company Number: None

PATIENT
  Age: 55 Year
  Sex: Female
  Weight: 72.5755 kg

DRUGS (1)
  1. ZOLPIDEM TARTRATE [Suspect]
     Indication: INSOMNIA
     Dosage: 1 TABLET ONCE A DAY ORAL DAILY
     Route: 048
     Dates: start: 20090901, end: 20100601

REACTIONS (3)
  - AMNESIA [None]
  - CERVICAL VERTEBRAL FRACTURE [None]
  - HEADACHE [None]
